FAERS Safety Report 14817250 (Version 4)
Quarter: 2021Q4

REPORT INFORMATION
  Report Type: Spontaneous
  Country: IT (occurrence: IT)
  Receive Date: 20180426
  Receipt Date: 20211116
  Transmission Date: 20220303
  Serious: Yes (Life-Threatening, Hospitalization, Other)
  Sender: FDA-Public Use
  Company Number: CHNY2009IT02094

PATIENT
  Age: 5 Year
  Sex: Female
  Weight: 19 kg

DRUGS (10)
  1. IBUPROFEN [Interacting]
     Active Substance: IBUPROFEN
     Indication: Pyrexia
     Dosage: 5 MG/KG/DOSE EVERY 8 H ( THREE TOTAL DOSES; IN AN ALTERNATING REGIMEN WITH PARACETAMOL)
     Route: 048
  2. IBUPROFEN [Interacting]
     Active Substance: IBUPROFEN
     Indication: Analgesic intervention supportive therapy
  3. IBUPROFEN [Interacting]
     Active Substance: IBUPROFEN
     Indication: Hyperpyrexia
  4. IBUPROFEN [Interacting]
     Active Substance: IBUPROFEN
     Indication: Febrile infection
  5. ACETAMINOPHEN [Interacting]
     Active Substance: ACETAMINOPHEN
     Indication: Analgesic intervention supportive therapy
     Dosage: 11 MG/KG/DOSE, TWO TOTAL DOSES OVER 5 H (1ST DAY); AS OF 2ND DAY IN ALTERNATE REGIMEN WITH IBUPROFEN
     Route: 048
  6. ACETAMINOPHEN [Interacting]
     Active Substance: ACETAMINOPHEN
     Indication: Seizure prophylaxis
  7. ACETAMINOPHEN [Interacting]
     Active Substance: ACETAMINOPHEN
     Indication: Febrile infection
  8. ACETAMINOPHEN [Interacting]
     Active Substance: ACETAMINOPHEN
     Indication: Pyrexia
  9. DIAZEPAM [Suspect]
     Active Substance: DIAZEPAM
     Indication: Febrile convulsion
     Dosage: UNK
     Route: 054
  10. ORAL REHYDRATION SALT [Concomitant]
     Indication: Dehydration
     Dosage: UNK
     Route: 065

REACTIONS (22)
  - Acute kidney injury [Recovered/Resolved]
  - Hepatitis cholestatic [Recovered/Resolved]
  - Blood fibrinogen increased [Recovered/Resolved]
  - Platelet count increased [Recovered/Resolved]
  - Fibrin D dimer increased [Recovered/Resolved]
  - Blood immunoglobulin G increased [Recovered/Resolved]
  - Drug interaction [Unknown]
  - Hypertension [Recovered/Resolved]
  - Acute hepatic failure [Recovered/Resolved]
  - Hepatic enzyme increased [Recovered/Resolved]
  - Gamma-glutamyltransferase increased [Recovered/Resolved]
  - Kidney enlargement [Recovered/Resolved]
  - Renal impairment [Recovered/Resolved]
  - Red blood cell sedimentation rate increased [Recovered/Resolved]
  - Alpha 1 microglobulin increased [Recovered/Resolved]
  - Blood creatinine increased [Recovered/Resolved]
  - Blood urea increased [Recovered/Resolved]
  - Blood sodium decreased [Recovered/Resolved]
  - C-reactive protein increased [Recovered/Resolved]
  - Base excess [Recovered/Resolved]
  - Blood albumin decreased [Recovered/Resolved]
  - Tubulointerstitial nephritis [Unknown]
